FAERS Safety Report 7421596-1 (Version None)
Quarter: 2011Q2

REPORT INFORMATION
  Report Type: 
  Country: None (occurrence: None)
  Receive Date: 20110408
  Receipt Date: 20110324
  Transmission Date: 20111010
  Serious: Yes (Other)
  Sender: FDA-Public Use
  Company Number: AUR-APL-2011-01095

PATIENT
  Age: 60 Year
  Sex: Female
  Weight: 54.4316 kg

DRUGS (2)
  1. ALENDRONATE SODIUM [Suspect]
     Indication: OSTEOPOROSIS
     Dosage: 70MG, WEEKLY, ORAL
     Route: 048
     Dates: start: 20100601, end: 20100701
  2. LEVOXYL [Concomitant]

REACTIONS (3)
  - PRODUCT SUBSTITUTION ISSUE [None]
  - PHARYNGEAL OEDEMA [None]
  - OROPHARYNGEAL PAIN [None]
